FAERS Safety Report 18660938 (Version 1)
Quarter: 2020Q4

REPORT INFORMATION
  Report Type: Spontaneous
  Country: CN (occurrence: CN)
  Receive Date: 20201224
  Receipt Date: 20201224
  Transmission Date: 20210114
  Serious: Yes (Life-Threatening, Hospitalization, Other)
  Sender: FDA-Public Use
  Company Number: CN-STRIDES ARCOLAB LIMITED-2020SP015832

PATIENT
  Age: 6 Decade
  Sex: Male

DRUGS (5)
  1. TACROLIMUS. [Suspect]
     Active Substance: TACROLIMUS
     Dosage: UNK (DOSE DECREASED)
     Route: 065
  2. METHYLPREDNISOLONE. [Suspect]
     Active Substance: METHYLPREDNISOLONE
     Indication: GLOMERULONEPHRITIS MEMBRANOUS
     Dosage: 16 MILLIGRAM PER DAY
     Route: 065
  3. METHYLPREDNISOLONE. [Suspect]
     Active Substance: METHYLPREDNISOLONE
     Indication: NEPHROTIC SYNDROME
     Dosage: UNK (DOSE DECREASED)
     Route: 065
  4. TACROLIMUS. [Suspect]
     Active Substance: TACROLIMUS
     Indication: NEPHROTIC SYNDROME
     Dosage: 0.5 MILLIGRAM, QOD
     Route: 065
  5. TACROLIMUS. [Suspect]
     Active Substance: TACROLIMUS
     Indication: GLOMERULONEPHRITIS MEMBRANOUS
     Dosage: 1 MILLIGRAM, QOD
     Route: 065

REACTIONS (6)
  - Hypoalbuminaemia [Recovered/Resolved]
  - Abdominal abscess [Recovered/Resolved]
  - Cutaneous nocardiosis [Recovered/Resolved]
  - Brain abscess [Recovered/Resolved]
  - Off label use [Unknown]
  - Nocardiosis [Recovered/Resolved]
